FAERS Safety Report 19376756 (Version 1)
Quarter: 2021Q2

REPORT INFORMATION
  Report Type: Spontaneous
  Country: CA (occurrence: CA)
  Receive Date: 20210605
  Receipt Date: 20210605
  Transmission Date: 20210717
  Serious: Yes (Other)
  Sender: FDA-Public Use
  Company Number: CA-TEVA-2021-CA-1918289

PATIENT
  Age: 39 Year
  Sex: Male

DRUGS (1)
  1. PREDNISONE. [Suspect]
     Active Substance: PREDNISONE
     Route: 048

REACTIONS (2)
  - Vision blurred [Unknown]
  - Retinopathy [Unknown]

NARRATIVE: CASE EVENT DATE: 202105
